FAERS Safety Report 5830061-4 (Version None)
Quarter: 2008Q3

REPORT INFORMATION
  Report Type: 
  Country: None (occurrence: None)
  Receive Date: 20080801
  Receipt Date: 20080724
  Transmission Date: 20090109
  Serious: Yes (Death, Other)
  Sender: FDA-Public Use
  Company Number: US-AVENTIS-200813820US

PATIENT
  Sex: Female
  Weight: 77.27 kg

DRUGS (25)
  1. LANTUS [Suspect]
     Route: 058
     Dates: end: 20080504
  2. OPTICLIK (INSULIN INJECTION PEN) [Suspect]
  3. DURAGESIC-100 [Concomitant]
     Indication: PAIN
     Dates: end: 20080505
  4. LISINOPRIL [Concomitant]
     Indication: HYPERTENSION
     Dates: end: 20080505
  5. ALDACTONE [Concomitant]
  6. ALPHAGAN                           /01341102/ [Concomitant]
     Indication: GLAUCOMA
     Dosage: DOSE QUANTITY: 1
  7. APIDRA [Concomitant]
     Route: 058
  8. CALCIUM WITH VITAMIN D             /01233101/ [Concomitant]
     Indication: OSTEOPOROSIS
     Route: 048
  9. FORTEO [Concomitant]
     Indication: OSTEOPOROSIS
     Route: 058
  10. XANAX [Concomitant]
     Indication: ANXIETY
  11. TRAMADOL HCL [Concomitant]
     Dosage: DOSE: 50 MG Q6H
     Route: 048
  12. URECHOLINE [Concomitant]
     Indication: URINARY INCONTINENCE
     Route: 048
  13. ARTIFICIAL TEARS                   /90046201/ [Concomitant]
     Dosage: DOSE: 2 DROPS BOTH EYES
  14. PREDNISONE [Concomitant]
     Route: 048
  15. LACTULOSE [Concomitant]
     Indication: CONSTIPATION
     Dosage: DOSE: 30 ML HS
     Route: 048
  16. MIRALAX [Concomitant]
     Indication: CONSTIPATION
     Route: 048
  17. LEVOTHYROXINE SODIUM [Concomitant]
     Indication: HYPOTHYROIDISM
     Route: 048
  18. GABAPENTIN [Concomitant]
     Route: 048
  19. PROTONIX [Concomitant]
     Indication: GASTRITIS
     Route: 048
  20. SIMETHICONE [Concomitant]
     Route: 048
  21. LIDODERM PATCH 2% [Concomitant]
     Dosage: DOSE: 12 H ON, 12 H OFF
  22. ZOFRAN [Concomitant]
     Indication: NAUSEA
     Dosage: DOSE: 4 MG TID
     Route: 048
  23. NORVASC [Concomitant]
     Indication: HYPERTENSION
     Route: 048
  24. NAMENDA [Concomitant]
     Indication: DEMENTIA
     Route: 048
  25. DUONEB [Concomitant]
     Dosage: DOSE: 3 ML Q 4-6H
     Route: 055

REACTIONS (4)
  - BACTERAEMIA [None]
  - BLOOD GLUCOSE INCREASED [None]
  - RENAL FAILURE [None]
  - URINARY TRACT INFECTION [None]
